FAERS Safety Report 7719605-5 (Version None)
Quarter: 2011Q3

REPORT INFORMATION
  Report Type: 
  Country: None (occurrence: None)
  Receive Date: 20110830
  Receipt Date: 20110824
  Transmission Date: 20111222
  Serious: Yes (Life-Threatening)
  Sender: FDA-Public Use
  Company Number: FR-BRISTOL-MYERS SQUIBB COMPANY-16001356

PATIENT
  Age: 90 Year
  Sex: Female

DRUGS (9)
  1. IRBESARTAN AND HYDROCHLOROTHIAZIDE [Suspect]
     Indication: HYPERTENSION
     Dosage: 1DF=1 TABLET
     Route: 048
     Dates: start: 20110324, end: 20110427
  2. RABEPRAZOLE SODIUM [Suspect]
     Dosage: 20MG IS THE STRENGTH. ENTERIC COATED TABLET. 1 TAB DAILY
     Route: 048
     Dates: start: 20110324, end: 20110428
  3. AMLODIPINE [Concomitant]
     Indication: HYPERTENSION
     Route: 048
     Dates: start: 20110330, end: 20110502
  4. LOVENOX [Concomitant]
     Dosage: 4000 IU IS THE STRENGTH. 1DF=1 INJECTION
     Route: 058
     Dates: start: 20110314, end: 20110428
  5. NITRODERM [Concomitant]
     Dosage: NITRIDERM TTS 5 MG/24H IS THE STRENGTH. 1DF=1 PATCH
     Route: 062
  6. SECTRAL [Concomitant]
     Indication: HYPERTENSION
     Dosage: FILM-COATED TABLET. 200MG IS THE STRENGTH 1DF=HALF A TABLET DAILY
     Route: 048
     Dates: end: 20110502
  7. ACETAMINOPHEN [Concomitant]
     Dosage: 500MG IS THE STRENGTH. 1DF=2 SACHETS
     Route: 048
     Dates: start: 20110324
  8. AMITRIPTYLINE HCL [Concomitant]
     Dosage: 40 MG/ML IS THE STRENGTH. ORAL SOLUTION.
     Route: 048
     Dates: start: 20110324
  9. OXAZEPAM [Concomitant]
     Dosage: 10 MG IS THE STRENGTH. 1DF=2 TABLETS
     Route: 048
     Dates: start: 20110324

REACTIONS (2)
  - HYPONATRAEMIA [None]
  - HYPOKALAEMIA [None]
